FAERS Safety Report 16833449 (Version 1)
Quarter: 2019Q3

REPORT INFORMATION
  Report Type: Spontaneous
  Country: RO (occurrence: RO)
  Receive Date: 20190920
  Receipt Date: 20190920
  Transmission Date: 20191005
  Serious: Yes (Other)
  Sender: FDA-Public Use
  Company Number: RO-SA-2019SA261692

PATIENT
  Age: 81 Year
  Sex: Female

DRUGS (5)
  1. SILODOSIN. [Suspect]
     Active Substance: SILODOSIN
     Indication: HYPERTONIC BLADDER
     Dosage: 8 MG, QD
     Route: 048
  2. SILODOSIN. [Suspect]
     Active Substance: SILODOSIN
     Indication: HYPERTONIC BLADDER
     Dosage: 4 MG, QD
     Route: 048
  3. TAMSULOSIN HYDROCHLORIDE. [Suspect]
     Active Substance: TAMSULOSIN HYDROCHLORIDE
     Indication: HYPERTONIC BLADDER
     Dosage: 0.4 MG, HS
     Route: 065
     Dates: start: 20181212
  4. BETMIGA [Suspect]
     Active Substance: MIRABEGRON
     Indication: HYPERTONIC BLADDER
     Dosage: 50 MG, QD
     Route: 048
  5. BETMIGA [Concomitant]
     Active Substance: MIRABEGRON
     Indication: HYPERTONIC BLADDER
     Dosage: 25 MG, QD
     Route: 048

REACTIONS (5)
  - Urinary retention [Unknown]
  - Vertigo [Recovered/Resolved]
  - Product use issue [Unknown]
  - Hypertension [Recovered/Resolved]
  - Nausea [Recovered/Resolved]
